FAERS Safety Report 14695475 (Version 1)
Quarter: 2018Q1

REPORT INFORMATION
  Report Type: Spontaneous
  Country: US (occurrence: US)
  Receive Date: 20180327
  Receipt Date: 20180327
  Transmission Date: 20180509
  Serious: Yes (Hospitalization)
  Sender: FDA-Public Use
  Company Number: None

PATIENT
  Age: 74 Year
  Sex: Male
  Weight: 71.3 kg

DRUGS (1)
  1. HYDROMORPHONE [Suspect]
     Active Substance: HYDROMORPHONE
     Indication: PAIN

REACTIONS (7)
  - Confusional state [None]
  - Subdural haematoma [None]
  - Encephalopathy [None]
  - Head injury [None]
  - Agitation [None]
  - Fall [None]
  - Infection [None]

NARRATIVE: CASE EVENT DATE: 20170619
